FAERS Safety Report 7702043-9 (Version None)
Quarter: 2011Q3

REPORT INFORMATION
  Report Type: 
  Country: None (occurrence: None)
  Receive Date: 20110822
  Receipt Date: 20110816
  Transmission Date: 20111222
  Serious: Yes (Other)
  Sender: FDA-Public Use
  Company Number: DE-AMGEN-DEUSP2011041772

PATIENT
  Age: 47 Year
  Sex: Female

DRUGS (3)
  1. NEULASTA [Suspect]
     Indication: CHEMOTHERAPY
  2. EPIRUBICIN [Concomitant]
     Indication: BREAST CANCER
  3. TAXOTERE [Concomitant]
     Dosage: 100 MG, UNK

REACTIONS (3)
  - LOCAL SWELLING [None]
  - BONE PAIN [None]
  - BACK PAIN [None]
